FAERS Safety Report 9487115 (Version 3)
Quarter: 2013Q4

REPORT INFORMATION
  Report Type: Spontaneous
  Country: US (occurrence: US)
  Receive Date: 20130829
  Receipt Date: 20131226
  Transmission Date: 20140711
  Serious: Yes (Other)
  Sender: FDA-Public Use
  Company Number: US-ALLERGAN-1312871US

PATIENT
  Age: 38 Year
  Sex: Female
  Weight: 54.42 kg

DRUGS (4)
  1. OZURDEX [Suspect]
     Indication: CYSTOID MACULAR OEDEMA
     Dosage: 0.7 MG, SINGLE
     Route: 031
     Dates: start: 20130516, end: 20130516
  2. COMBIGAN[R] [Concomitant]
     Indication: GLAUCOMA
     Dosage: 1 GTT, BID
     Route: 047
     Dates: start: 2011
  3. MURAD [Concomitant]
     Indication: PRODUCT USED FOR UNKNOWN INDICATION
     Dosage: 1 GTT, QID
     Route: 047
     Dates: start: 20130516
  4. MURAD [Concomitant]
     Indication: PRODUCT USED FOR UNKNOWN INDICATION
     Dosage: UNK, QHS
     Route: 047
     Dates: start: 20130516

REACTIONS (7)
  - Blindness unilateral [Recovering/Resolving]
  - Vision blurred [Recovering/Resolving]
  - Corneal irritation [Unknown]
  - Corneal oedema [Unknown]
  - Device dislocation [Unknown]
  - Visual impairment [Recovering/Resolving]
  - Complication of device insertion [Unknown]
